FAERS Safety Report 5366096-8 (Version None)
Quarter: 2007Q2

REPORT INFORMATION
  Report Type: 
  Country: None (occurrence: None)
  Receive Date: 20070611
  Receipt Date: 20060920
  Transmission Date: 20071010
  Serious: Yes (Other)
  Sender: FDA-Public Use
  Company Number: USA-2006-0026490

PATIENT
  Age: 14 Year
  Sex: Female

DRUGS (3)
  1. OXYCONTIN [Suspect]
     Indication: DRUG ABUSER
  2. PERCOCET [Suspect]
     Indication: DRUG ABUSER
  3. XANAX [Suspect]
     Indication: DRUG ABUSER

REACTIONS (1)
  - SUBSTANCE ABUSE [None]
